FAERS Safety Report 4761148-5 (Version None)
Quarter: 2005Q3

REPORT INFORMATION
  Report Type: 
  Country: None (occurrence: None)
  Receive Date: 20050901
  Receipt Date: 20050819
  Transmission Date: 20060218
  Serious: Yes (Other)
  Sender: FDA-Public Use
  Company Number: 2005117815

PATIENT
  Age: 22 Year
  Sex: Female
  Weight: 49.8957 kg

DRUGS (2)
  1. BENADRYL CREAM (DIPHENHYDRAMINE) [Suspect]
     Indication: PRURITUS
     Dosage: SMALL AMOUNT ONCE, TOPICAL
     Route: 061
     Dates: start: 20050817, end: 20050817
  2. BENADRYL [Suspect]
     Indication: HYPERSENSITIVITY
     Dosage: AROUND THREE TABLETS A DAY ORAL
     Route: 048
     Dates: start: 20050817

REACTIONS (5)
  - DRY SKIN [None]
  - PHARYNGEAL OEDEMA [None]
  - RASH [None]
  - SKIN EXFOLIATION [None]
  - SWELLING FACE [None]
